FAERS Safety Report 4448383-0 (Version None)
Quarter: 2004Q3

REPORT INFORMATION
  Report Type: 
  Country: None (occurrence: None)
  Receive Date: 20040910
  Receipt Date: 20040910
  Transmission Date: 20050211
  Serious: Yes (Other)
  Sender: FDA-Public Use
  Company Number: None

PATIENT
  Sex: Male

DRUGS (2)
  1. DEXEDRINE [Suspect]
     Indication: MAJOR DEPRESSION
     Dosage: 10 MG QID
     Dates: start: 20000501
  2. DEXTRO AMPHETAMINE SULFATE TAB [Suspect]

REACTIONS (2)
  - DRUG EFFECT DECREASED [None]
  - PHARMACEUTICAL PRODUCT COMPLAINT [None]
